FAERS Safety Report 8676634 (Version 4)
Quarter: 2013Q4

REPORT INFORMATION
  Report Type: Spontaneous
  Country: CA (occurrence: CA)
  Receive Date: 20120723
  Receipt Date: 20131105
  Transmission Date: 20140711
  Serious: No
  Sender: FDA-Public Use
  Company Number: CA-009507513-1206USA01908

PATIENT
  Age: 68 Year
  Sex: Female

DRUGS (3)
  1. SINEMET CR [Suspect]
     Indication: PARKINSON^S DISEASE
     Dosage: 50/200
     Route: 048
     Dates: start: 2008
  2. SINEMET CR [Suspect]
     Dosage: 50/200
     Route: 048
     Dates: start: 201202, end: 201206
  3. SINEMET CR [Suspect]
     Dosage: 50/200
     Route: 048
     Dates: start: 20120605

REACTIONS (4)
  - Parkinson^s disease [Unknown]
  - Adverse event [Unknown]
  - Overdose [Unknown]
  - Product quality issue [Unknown]
